FAERS Safety Report 8986228 (Version 2)
Quarter: 2013Q1

REPORT INFORMATION
  Report Type: Report from Study
  Country: US (occurrence: US)
  Receive Date: 20121227
  Receipt Date: 20130122
  Transmission Date: 20140127
  Serious: Yes (Hospitalization)
  Sender: FDA-Public Use
  Company Number: US-009507513-1212USA009339

PATIENT
  Age: 68 Year
  Sex: Female
  Weight: 109 kg

DRUGS (27)
  1. DEXAMETHASONE [Suspect]
     Indication: PLASMA CELL MYELOMA
     Dosage: 20 MG, SCHEDULE B DAYS 8, 11, 15, 18 EVERY 3 WEEKS
     Route: 048
     Dates: start: 20101228, end: 20120224
  2. [COMPOSITION UNSPECIFIED] [Suspect]
     Indication: PLASMA CELL MYELOMA
     Dosage: 100 MG, SCHEDULE 8 DAILY; 12 DAYS ON/ 9 DAYS OFF
     Route: 048
     Dates: start: 20101221, end: 20120218
  3. BORTEZOMIB [Suspect]
     Indication: PLASMA CELL MYELOMA
     Dosage: 1.8 MG, SCHEDULE 8 DAYS 8, 11 , 15, 18 EVERY 3 WEEKS
     Route: 042
     Dates: start: 20101228, end: 20120224
  4. APIDRA [Concomitant]
     Indication: DIABETES MELLITUS
     Dosage: UNK
     Dates: start: 20120214
  5. LYRICA [Concomitant]
     Indication: NEUROPATHY PERIPHERAL
     Dosage: UNK
     Dates: start: 20120214
  6. SYMBICORT [Concomitant]
     Indication: WHEEZING
     Dosage: UNK
     Dates: start: 20120214
  7. LEVAQUIN [Concomitant]
     Indication: ANTIBIOTIC THERAPY
     Dosage: UNK
     Dates: start: 20120214
  8. CALTRATE WITH VITAMIN D [Concomitant]
     Indication: MEDICAL DIET
     Dosage: UNK
     Dates: start: 20120214
  9. ZYRTEC [Concomitant]
     Indication: SEASONAL ALLERGY
     Dosage: UNK
     Dates: start: 20120214
  10. CARDIZEM [Concomitant]
     Indication: HYPERTENSION
     Dosage: UNK
     Dates: start: 20120214
  11. AMARYL [Concomitant]
     Indication: DIABETES MELLITUS
     Dosage: UNK
     Dates: start: 20120214
  12. ZOVIRAX [Concomitant]
     Indication: FUNGAL INFECTION
  13. LOPERAMIDE HYDROCHLORIDE [Concomitant]
     Indication: DIARRHOEA
  14. LANTUS [Concomitant]
     Indication: DIABETES MELLITUS
  15. PEPCID [Concomitant]
     Indication: GASTROOESOPHAGEAL REFLUX DISEASE
  16. COLACE [Concomitant]
     Indication: CONSTIPATION
  17. PROZAC [Concomitant]
     Indication: DEPRESSION
  18. PRINIVIL [Concomitant]
     Indication: HYPERTENSION
  19. VITAMIN E [Concomitant]
     Indication: MEDICAL DIET
  20. ATIVAN [Concomitant]
     Indication: NAUSEA
     Dosage: UNK
     Dates: start: 20120214
  21. TYLENOL [Concomitant]
     Indication: PAIN
     Dosage: UNK
     Dates: start: 20120214
  22. VICODIN [Concomitant]
     Indication: PAIN
     Dosage: UNK
     Dates: start: 20120214
  23. VENTOLIN (ALBUTEROL) [Concomitant]
     Indication: WHEEZING
     Dosage: UNK
     Dates: start: 20120214
  24. PROAIR (PROCATEROL HYDROCHLORIDE) [Concomitant]
     Indication: WHEEZING
     Dosage: UNK
     Dates: start: 20120214
  25. OMEGA-3 MARINE TRIGLYCERIDES [Concomitant]
     Indication: MEDICAL DIET
     Dosage: UNK
     Dates: start: 20120214
  26. REQUIP [Concomitant]
     Indication: RESTLESS LEGS SYNDROME
     Dosage: UNK
     Dates: start: 20120214
  27. K-DUR [Concomitant]
     Indication: HYPOKALAEMIA
     Dosage: UNK
     Dates: start: 20120214

REACTIONS (1)
  - Pneumonia [Recovered/Resolved]
